FAERS Safety Report 9118298 (Version 1)
Quarter: 2013Q1

REPORT INFORMATION
  Report Type: Spontaneous
  Country: US (occurrence: None)
  Receive Date: 20130221
  Receipt Date: 20130221
  Transmission Date: 20140127
  Serious: Yes (Other)
  Sender: FDA-Public Use
  Company Number: None

PATIENT
  Age: 55 Year
  Sex: Male
  Weight: 77.11 kg

DRUGS (1)
  1. PREVACID 30 MG BRAND NAME AND GENERIC TAKEN [Suspect]
     Indication: GASTROOESOPHAGEAL REFLUX DISEASE
     Route: 048
     Dates: start: 19960101, end: 20130127

REACTIONS (10)
  - Hypotension [None]
  - Dizziness [None]
  - Syncope [None]
  - Cardiac arrest [None]
  - Chest pain [None]
  - Tachycardia [None]
  - Hypoglycaemia [None]
  - Head injury [None]
  - Fall [None]
  - Dehydration [None]
